FAERS Safety Report 8810790 (Version 1)
Quarter: 2012Q4

REPORT INFORMATION
  Report Type: 
  Country: FR (occurrence: FR)
  Receive Date: 20120927
  Receipt Date: 20120927
  Transmission Date: 20130627
  Serious: No
  Sender: FDA-Public Use
  Company Number: FR-JNJFOC-20120906694

PATIENT
  Age: 72 Year
  Sex: Female

DRUGS (2)
  1. DUROGESIC [Suspect]
     Indication: CANCER PAIN
     Route: 062
  2. INSTANYL [Concomitant]
     Indication: LYMPHADENOPATHY
     Route: 045

REACTIONS (3)
  - Pain [Unknown]
  - Product quality issue [Unknown]
  - Wrong technique in drug usage process [Unknown]
